FAERS Safety Report 12927020 (Version 2)
Quarter: 2017Q1

REPORT INFORMATION
  Report Type: Report from Study
  Country: None (occurrence: US)
  Receive Date: 20161108
  Receipt Date: 20170126
  Transmission Date: 20170428
  Serious: Yes (Hospitalization)
  Sender: FDA-Public Use
  Company Number: US-ABBVIE-16K-163-1772463-00

PATIENT
  Sex: Female

DRUGS (6)
  1. BACLOFEN. [Concomitant]
     Active Substance: BACLOFEN
     Indication: MUSCLE SPASMS
  2. HUMIRA [Suspect]
     Active Substance: ADALIMUMAB
     Indication: PSORIATIC ARTHROPATHY
     Route: 058
     Dates: start: 201510, end: 20160501
  3. CYMBALTA [Concomitant]
     Active Substance: DULOXETINE HYDROCHLORIDE
     Indication: FIBROMYALGIA
  4. GABAPENTIN. [Concomitant]
     Active Substance: GABAPENTIN
     Indication: FIBROMYALGIA
  5. TYLENOL [Concomitant]
     Active Substance: ACETAMINOPHEN
     Indication: PAIN
  6. METHOTREXATE. [Suspect]
     Active Substance: METHOTREXATE
     Indication: PSORIATIC ARTHROPATHY
     Route: 065

REACTIONS (6)
  - Back pain [Recovering/Resolving]
  - Ear infection [Recovering/Resolving]
  - Sinusitis [Recovered/Resolved]
  - Ear infection [Not Recovered/Not Resolved]
  - Sinusitis [Not Recovered/Not Resolved]
  - Myofascial pain syndrome [Not Recovered/Not Resolved]

NARRATIVE: CASE EVENT DATE: 2016
